FAERS Safety Report 17206903 (Version 1)
Quarter: 2019Q4

REPORT INFORMATION
  Report Type: Spontaneous
  Country: US (occurrence: US)
  Receive Date: 20191227
  Receipt Date: 20191227
  Transmission Date: 20200122
  Serious: Yes (Hospitalization)
  Sender: FDA-Public Use
  Company Number: US-ASTRAZENECA-2019SF87988

PATIENT
  Age: 107 Day
  Sex: Female

DRUGS (3)
  1. SYNAGIS [Suspect]
     Active Substance: PALIVIZUMAB
     Indication: BRONCHOPULMONARY DYSPLASIA
     Route: 030
     Dates: start: 20191124
  2. SYNAGIS [Suspect]
     Active Substance: PALIVIZUMAB
     Indication: PREMATURE LABOUR
     Route: 030
     Dates: start: 20191124
  3. SYNAGIS [Suspect]
     Active Substance: PALIVIZUMAB
     Indication: GESTATIONAL AGE TEST ABNORMAL
     Route: 030
     Dates: start: 20191124

REACTIONS (1)
  - Bronchiolitis [Unknown]

NARRATIVE: CASE EVENT DATE: 20191124
